FAERS Safety Report 6028400-7 (Version None)
Quarter: 2009Q1

REPORT INFORMATION
  Report Type: 
  Country: None (occurrence: None)
  Receive Date: 20090106
  Receipt Date: 20081230
  Transmission Date: 20090719
  Serious: Yes (Disabling, Other)
  Sender: FDA-Public Use
  Company Number: DE-AVENTIS-200813306DE

PATIENT
  Age: 69 Year
  Sex: Male
  Weight: 102 kg

DRUGS (4)
  1. TAXOTERE [Suspect]
     Indication: METASTATIC GASTRIC CANCER
     Route: 042
     Dates: start: 20080922, end: 20081217
  2. FLUOROURACIL [Concomitant]
     Indication: METASTATIC GASTRIC CANCER
     Dates: start: 20080922, end: 20081217
  3. CARBOPLATIN [Concomitant]
     Indication: METASTATIC GASTRIC CANCER
     Route: 042
     Dates: start: 20080922, end: 20081217
  4. ONCOFOLIC [Concomitant]
     Indication: METASTATIC GASTRIC CANCER
     Dates: start: 20080922, end: 20081217

REACTIONS (1)
  - VOCAL CORD PARALYSIS [None]
